FAERS Safety Report 10436362 (Version 1)
Quarter: 2014Q3

REPORT INFORMATION
  Report Type: Spontaneous
  Country: AM (occurrence: AM)
  Receive Date: 20140908
  Receipt Date: 20140908
  Transmission Date: 20150326
  Serious: Yes (Other)
  Sender: FDA-Public Use
  Company Number: AM-TAKEDA-2014TUS008274

PATIENT

DRUGS (4)
  1. MYCOPHENOLATE MOFETIL. [Interacting]
     Active Substance: MYCOPHENOLATE MOFETIL
     Route: 065
  2. CYCLOSPORINE. [Interacting]
     Active Substance: CYCLOSPORINE
     Route: 065
  3. CALCINEURIN INHIBITORS [Interacting]
     Active Substance: UNSPECIFIED INGREDIENT
     Route: 065
  4. COLCHICINE. [Suspect]
     Active Substance: COLCHICINE
     Indication: FAMILIAL MEDITERRANEAN FEVER
     Dosage: 0.6-1.2 MG/DAY
     Route: 065

REACTIONS (3)
  - Drug interaction [Unknown]
  - Renal failure [Unknown]
  - Tuberculosis [Unknown]
